FAERS Safety Report 21275135 (Version 1)
Quarter: 2022Q3

REPORT INFORMATION
  Report Type: Spontaneous
  Country: JP (occurrence: JP)
  Receive Date: 20220831
  Receipt Date: 20220831
  Transmission Date: 20221027
  Serious: Yes (Death, Hospitalization, Other)
  Sender: FDA-Public Use
  Company Number: JP-ALVOGEN-2022-ALVOGEN-120806

PATIENT
  Age: 25 Year
  Sex: Female

DRUGS (1)
  1. VORICONAZOLE [Suspect]
     Active Substance: VORICONAZOLE
     Indication: Antifungal prophylaxis
     Route: 048

REACTIONS (4)
  - Rhinocerebral mucormycosis [Unknown]
  - Pneumonia aspiration [Fatal]
  - Cerebral infarction [Unknown]
  - Drug ineffective [Unknown]
